FAERS Safety Report 11929099 (Version 2)
Quarter: 2016Q1

REPORT INFORMATION
  Report Type: Spontaneous
  Country: JP (occurrence: JP)
  Receive Date: 20160120
  Receipt Date: 20160223
  Transmission Date: 20160526
  Serious: Yes (Other)
  Sender: FDA-Public Use
  Company Number: JP-CELGENE-JPN-2016013370

PATIENT
  Age: 72 Year
  Sex: Male

DRUGS (1)
  1. ABRAXANE [Suspect]
     Active Substance: PACLITAXEL
     Indication: PRODUCT USED FOR UNKNOWN INDICATION
     Route: 041
     Dates: start: 20150820, end: 20151224

REACTIONS (3)
  - Cranial nerve paralysis [Unknown]
  - Facial paralysis [Not Recovered/Not Resolved]
  - Peripheral nerve palsy [Not Recovered/Not Resolved]

NARRATIVE: CASE EVENT DATE: 20151001
